FAERS Safety Report 11556218 (Version 1)
Quarter: 2015Q3

REPORT INFORMATION
  Report Type: Report from Study
  Country: BR (occurrence: BR)
  Receive Date: 20150925
  Receipt Date: 20150925
  Transmission Date: 20151125
  Serious: Yes (Death)
  Sender: FDA-Public Use
  Company Number: BR-ABBVIE-15K-020-1468353-00

PATIENT
  Age: 55 Year
  Sex: Male

DRUGS (3)
  1. CHLOROQUINE [Concomitant]
     Active Substance: CHLOROQUINE\CHLOROQUINE PHOSPHATE
     Indication: RHEUMATOID ARTHRITIS
  2. HUMIRA [Suspect]
     Active Substance: ADALIMUMAB
     Indication: RHEUMATOID ARTHRITIS
     Route: 065
  3. METFORMIN [Concomitant]
     Active Substance: METFORMIN HYDROCHLORIDE
     Indication: DIABETES MELLITUS

REACTIONS (7)
  - Hypertension [Fatal]
  - Hypertensive emergency [Fatal]
  - Influenza [Unknown]
  - Hypoaesthesia [Unknown]
  - Haemorrhagic stroke [Fatal]
  - Diabetes mellitus [Fatal]
  - Renal pain [Unknown]

NARRATIVE: CASE EVENT DATE: 20140622
